FAERS Safety Report 15243636 (Version 1)
Quarter: 2018Q3

REPORT INFORMATION
  Report Type: Spontaneous
  Country: US (occurrence: US)
  Receive Date: 20180712
  Receipt Date: 20180712
  Transmission Date: 20181010
  Serious: Yes (Other)
  Sender: FDA-Public Use
  Company Number: None

PATIENT
  Age: 31 Year
  Sex: Female
  Weight: 58.5 kg

DRUGS (3)
  1. DEPO?PROVERA [Suspect]
     Active Substance: MEDROXYPROGESTERONE ACETATE
     Indication: CONTRACEPTION
     Dosage: ?          OTHER STRENGTH:N/A;QUANTITY:1 INJECTION(S);OTHER FREQUENCY:EVERY 3 MONTHS;OTHER ROUTE:INJECTION TO THE ARM?
  2. MULTIVITAMIN [Concomitant]
     Active Substance: VITAMINS
  3. ADDERALL XR [Concomitant]
     Active Substance: AMPHETAMINE ASPARTATE\AMPHETAMINE SULFATE\DEXTROAMPHETAMINE SACCHARATE\DEXTROAMPHETAMINE SULFATE

REACTIONS (7)
  - Suicidal ideation [None]
  - Fatigue [None]
  - Insomnia [None]
  - Irritability [None]
  - Mood swings [None]
  - Weight increased [None]
  - Decreased appetite [None]

NARRATIVE: CASE EVENT DATE: 20180401
